FAERS Safety Report 18898794 (Version 1)
Quarter: 2021Q1

REPORT INFORMATION
  Report Type: Spontaneous
  Country: US (occurrence: US)
  Receive Date: 20210215
  Receipt Date: 20210215
  Transmission Date: 20210420
  Serious: Yes (Other)
  Sender: FDA-Public Use
  Company Number: None

PATIENT
  Age: 45 Year
  Sex: Female
  Weight: 60.75 kg

DRUGS (1)
  1. PENICILLIN VK 500 MG [Suspect]
     Active Substance: PENICILLIN V POTASSIUM
     Indication: PHARYNGITIS STREPTOCOCCAL
     Route: 048
     Dates: start: 20210213

REACTIONS (3)
  - Peripheral swelling [None]
  - Secretion discharge [None]
  - Increased upper airway secretion [None]

NARRATIVE: CASE EVENT DATE: 20210213
